FAERS Safety Report 23388568 (Version 1)
Quarter: 2024Q1

REPORT INFORMATION
  Report Type: Spontaneous
  Country: NL (occurrence: None)
  Receive Date: 20240110
  Receipt Date: 20240110
  Transmission Date: 20240410
  Serious: Yes (Other)
  Sender: FDA-Public Use
  Company Number: 2024A001126

PATIENT
  Age: 49 Year
  Sex: Female

DRUGS (2)
  1. OSIMERTINIB [Suspect]
     Active Substance: OSIMERTINIB
     Indication: Non-small cell lung cancer stage IV
     Route: 048
     Dates: start: 202104
  2. SOTORASIB [Concomitant]
     Active Substance: SOTORASIB
     Indication: Non-small cell lung cancer stage IV
     Dates: start: 202305

REACTIONS (4)
  - Malignant neoplasm progression [Unknown]
  - Drug resistance [Unknown]
  - Acquired gene mutation [Unknown]
  - Metastases to lung [Unknown]

NARRATIVE: CASE EVENT DATE: 20230401
